FAERS Safety Report 25411032 (Version 1)
Quarter: 2025Q2

REPORT INFORMATION
  Report Type: Spontaneous
  Country: US (occurrence: US)
  Receive Date: 20250609
  Receipt Date: 20250609
  Transmission Date: 20250716
  Serious: No
  Sender: SPECGX
  Company Number: US-SPECGX-T202401593

PATIENT
  Age: 59 Year
  Sex: Female

DRUGS (1)
  1. DEXTROAMPHETAMINE SACCHARATE, AMPHETAMINE ASPARTATE, DEXTROAMPHETAMINE [Suspect]
     Active Substance: AMPHETAMINE ASPARTATE\AMPHETAMINE SULFATE\DEXTROAMPHETAMINE SACCHARATE\DEXTROAMPHETAMINE SULFATE
     Indication: Hypersomnia
     Dosage: 20 MILLIGRAM, QD
     Route: 065
     Dates: start: 202405

REACTIONS (4)
  - Product use in unapproved indication [Unknown]
  - Product quality issue [Unknown]
  - Product physical issue [Unknown]
  - Therapeutic product effect variable [Unknown]

NARRATIVE: CASE EVENT DATE: 20240501
